FAERS Safety Report 6432988-1 (Version None)
Quarter: 2009Q4

REPORT INFORMATION
  Report Type: 
  Country: None (occurrence: None)
  Receive Date: 20091105
  Receipt Date: 20091020
  Transmission Date: 20100525
  Serious: Yes (Death)
  Sender: FDA-Public Use
  Company Number: CTI_01060_2009

PATIENT
  Sex: Male

DRUGS (4)
  1. CUROSURF [Suspect]
     Indication: NEONATAL RESPIRATORY DISTRESS SYNDROME
     Dosage: (1.5 ML, SUSPENSION FOR INSTILLATION INTRATRACHEAL)
     Route: 039
     Dates: start: 20090819, end: 20090819
  2. FENTANYL-100 [Concomitant]
  3. NALOXONE [Concomitant]
  4. DEXTROSE [Concomitant]

REACTIONS (8)
  - ANAPHYLACTIC SHOCK [None]
  - CARDIAC ARREST [None]
  - NEONATAL RESPIRATORY DISTRESS SYNDROME [None]
  - OEDEMA [None]
  - PNEUMOTHORAX [None]
  - SEPSIS NEONATAL [None]
  - SKIN DISCOLOURATION [None]
  - SUBCUTANEOUS EMPHYSEMA [None]
